FAERS Safety Report 5782949-0 (Version None)
Quarter: 2008Q2

REPORT INFORMATION
  Report Type: 
  Country: None (occurrence: None)
  Receive Date: 20080619
  Receipt Date: 20080603
  Transmission Date: 20081010
  Serious: Yes (Life-Threatening)
  Sender: FDA-Public Use
  Company Number: 8033406

PATIENT
  Age: 57 Year
  Sex: Female

DRUGS (2)
  1. KEPPRA [Suspect]
     Dosage: PO
     Route: 048
     Dates: start: 20080529, end: 20080602
  2. ZOVIRAX [Concomitant]

REACTIONS (2)
  - LARYNGOSPASM [None]
  - URTICARIA [None]
